FAERS Safety Report 14033566 (Version 1)
Quarter: 2017Q4

REPORT INFORMATION
  Report Type: Spontaneous
  Country: US (occurrence: None)
  Receive Date: 20171003
  Receipt Date: 20171003
  Transmission Date: 20180321
  Serious: Yes (Hospitalization)
  Sender: FDA-Public Use
  Company Number: None

PATIENT
  Age: 28 Year
  Sex: Male
  Weight: 100.8 kg

DRUGS (1)
  1. IPILIMUMAB [Suspect]
     Active Substance: IPILIMUMAB
     Dates: end: 20170914

REACTIONS (4)
  - Headache [None]
  - Drug ineffective [None]
  - Nausea [None]
  - Pain [None]

NARRATIVE: CASE EVENT DATE: 20170928
